FAERS Safety Report 19793608 (Version 2)
Quarter: 2021Q4

REPORT INFORMATION
  Report Type: Report from Study
  Country: TH (occurrence: TH)
  Receive Date: 20210907
  Receipt Date: 20211231
  Transmission Date: 20220303
  Serious: Yes (Death)
  Sender: FDA-Public Use
  Company Number: TH-NOVARTISPH-PHHY2019TH067315

PATIENT
  Sex: Male

DRUGS (11)
  1. ENTRESTO [Suspect]
     Active Substance: SACUBITRIL\VALSARTAN
     Indication: Cardiac failure
     Dosage: 0.5 DF (200 MG), BID
     Route: 048
  2. ENTRESTO [Suspect]
     Active Substance: SACUBITRIL\VALSARTAN
     Dosage: 0.5 DOSAGE FORM, BID (TWICE DAILY AFTER BREAKFAST AND DINNER)
     Route: 065
  3. ENTRESTO [Suspect]
     Active Substance: SACUBITRIL\VALSARTAN
     Dosage: 0.5 DOSAGE FORM OF 200MG, BID
     Route: 048
     Dates: start: 20200403
  4. ENTRESTO [Suspect]
     Active Substance: SACUBITRIL\VALSARTAN
     Dosage: 0.5 DOSAGE FORM OF 200MG, BID
     Route: 048
     Dates: start: 20200516
  5. ENTRESTO [Suspect]
     Active Substance: SACUBITRIL\VALSARTAN
     Dosage: 0.5 DOSAGE FORM OF 200MG, BID
     Route: 048
     Dates: start: 20200605
  6. ENTRESTO [Suspect]
     Active Substance: SACUBITRIL\VALSARTAN
     Dosage: 0.5 DOSAGE FORM OF 200MG, BID
     Route: 048
     Dates: start: 20200816
  7. ENTRESTO [Suspect]
     Active Substance: SACUBITRIL\VALSARTAN
     Dosage: 0.5 DOSAGE FORM OF 200MG, BID
     Route: 048
     Dates: start: 20201004
  8. BISOPROLOL FUMARATE [Concomitant]
     Active Substance: BISOPROLOL FUMARATE
     Indication: Product used for unknown indication
     Dosage: 0.5 DOSAGE FORM, QD (TAKE A HALF OF TABLET ONCE DAILY)
     Route: 048
  9. BISOPROLOL FUMARATE [Concomitant]
     Active Substance: BISOPROLOL FUMARATE
     Dosage: 0.5 DOSAGE FORM, QD (TAKE A HALF OF TABLET ONCE DAILY)
     Route: 048
     Dates: start: 20200605
  10. BISOPROLOL FUMARATE [Concomitant]
     Active Substance: BISOPROLOL FUMARATE
     Dosage: 0.5 DOSAGE FORM, QD (TAKE A HALF OF TABLET ONCE DAILY)
     Route: 048
     Dates: start: 20200816
  11. BISOPROLOL FUMARATE [Concomitant]
     Active Substance: BISOPROLOL FUMARATE
     Dosage: 0.5 DOSAGE FORM, QD (TAKE A HALF OF TABLET ONCE DAILY)
     Route: 048
     Dates: start: 20201104

REACTIONS (2)
  - Death [Fatal]
  - Wrong technique in product usage process [Unknown]
